FAERS Safety Report 9418871 (Version 1)
Quarter: 2013Q3

REPORT INFORMATION
  Report Type: Spontaneous
  Country: US (occurrence: US)
  Receive Date: 20130725
  Receipt Date: 20130725
  Transmission Date: 20140515
  Serious: Yes (Other)
  Sender: FDA-Public Use
  Company Number: US-TEVA-420099USA

PATIENT
  Sex: Male

DRUGS (1)
  1. FENTORA [Suspect]
     Route: 048

REACTIONS (2)
  - Thrombosis [Unknown]
  - Pulmonary embolism [Unknown]
